FAERS Safety Report 6108378-8 (Version None)
Quarter: 2009Q1

REPORT INFORMATION
  Report Type: 
  Country: None (occurrence: None)
  Receive Date: 20090309
  Receipt Date: 20090218
  Transmission Date: 20090719
  Serious: Yes (Other)
  Sender: FDA-Public Use
  Company Number: GB-PFIZER INC-2009167478

PATIENT

DRUGS (6)
  1. CHAMPIX [Suspect]
     Indication: SMOKING CESSATION THERAPY
     Dosage: UNK
     Route: 048
     Dates: start: 20080606, end: 20080620
  2. DIAZEPAM [Concomitant]
     Dosage: UNK
     Route: 048
  3. SUBUTEX [Concomitant]
     Dosage: UNK
     Route: 060
  4. ZISPIN [Concomitant]
     Dosage: UNK
     Route: 060
  5. RISPERIDONE [Concomitant]
     Dosage: UNK
     Route: 048
  6. ACAMPROSATE [Concomitant]
     Dosage: UNK
     Route: 048

REACTIONS (3)
  - DEPRESSION [None]
  - MOOD ALTERED [None]
  - OBSESSIVE-COMPULSIVE DISORDER [None]
